FAERS Safety Report 5399651-X (Version None)
Quarter: 2007Q3

REPORT INFORMATION
  Report Type: 
  Country: None (occurrence: None)
  Receive Date: 20070727
  Receipt Date: 20070717
  Transmission Date: 20080115
  Serious: Yes (Other)
  Sender: FDA-Public Use
  Company Number: DE-ABBOTT-07P-062-0374867-00

PATIENT
  Age: 68 Year
  Sex: Female

DRUGS (5)
  1. HUMIRA [Suspect]
     Indication: DRUG USE FOR UNKNOWN INDICATION
     Dates: start: 20060901, end: 20061001
  2. HUMIRA [Suspect]
     Dates: start: 20061101
  3. METHOTREXATE [Suspect]
     Indication: DRUG USE FOR UNKNOWN INDICATION
     Dates: start: 20070101
  4. METHOTREXATE [Suspect]
     Dates: start: 20030101, end: 20040101
  5. METHOTREXATE [Suspect]
     Dates: start: 20050101, end: 20070101

REACTIONS (2)
  - FOOT OPERATION [None]
  - MENISCUS LESION [None]
